FAERS Safety Report 8100797-3 (Version None)
Quarter: 2012Q1

REPORT INFORMATION
  Report Type: 
  Country: None (occurrence: None)
  Receive Date: 20120129
  Receipt Date: 20111013
  Transmission Date: 20120608
  Serious: No
  Sender: FDA-Public Use
  Company Number: US-ABBOTT-11P-163-0864364-00

PATIENT
  Sex: Female
  Weight: 104.42 kg

DRUGS (4)
  1. HUMIRA [Suspect]
     Indication: ANKYLOSING SPONDYLITIS
     Dates: start: 20110929
  2. AMBIEN [Concomitant]
     Indication: INSOMNIA
     Dosage: PRN
  3. LORTAB [Concomitant]
     Indication: PAIN
     Dosage: PRN
  4. ZOLOFT [Concomitant]
     Indication: DEPRESSION

REACTIONS (7)
  - INJECTION SITE REACTION [None]
  - INJECTION SITE INDURATION [None]
  - INCORRECT DOSE ADMINISTERED [None]
  - INJECTION SITE URTICARIA [None]
  - INJECTION SITE PRURITUS [None]
  - INJECTION SITE WARMTH [None]
  - INJECTION SITE ERYTHEMA [None]
